FAERS Safety Report 5572944-9 (Version None)
Quarter: 2007Q4

REPORT INFORMATION
  Report Type: 
  Country: None (occurrence: None)
  Receive Date: 20071219
  Receipt Date: 20071219
  Transmission Date: 20080405
  Serious: Yes (Hospitalization)
  Sender: FDA-Public Use
  Company Number: None

PATIENT
  Age: 60 Year
  Sex: Female
  Weight: 81.1939 kg

DRUGS (16)
  1. QUETIAPINE FUMARATE [Suspect]
     Dosage: 200MG BID PO
     Route: 048
  2. OXYCODONE HCL [Suspect]
     Dosage: 5MG TID PO
     Route: 048
  3. RISPERDAL [Concomitant]
  4. QUETIAPINE [Concomitant]
  5. DEPAKOTE [Concomitant]
  6. DARVOCET-N 100 [Concomitant]
  7. ESTRADIOL [Concomitant]
  8. CYMBALTA [Concomitant]
  9. FAMOTIDINE [Concomitant]
  10. NAMENDA [Concomitant]
  11. EXELON [Concomitant]
  12. RANITIDINE HCL [Concomitant]
  13. TRAZODONE HCL [Concomitant]
  14. ABILIFY [Concomitant]
  15. TEGRETOL [Concomitant]
  16. LISINOPRIL [Concomitant]

REACTIONS (7)
  - AGGRESSION [None]
  - ANGER [None]
  - CHEST PAIN [None]
  - DEHYDRATION [None]
  - DYSPNOEA [None]
  - HYPOTENSION [None]
  - ORAL INTAKE REDUCED [None]
